FAERS Safety Report 9905126 (Version 1)
Quarter: 2014Q1

REPORT INFORMATION
  Report Type: Spontaneous
  Country: BR (occurrence: None)
  Receive Date: 20140211
  Receipt Date: 20140211
  Transmission Date: 20141002
  Serious: Yes (Other)
  Sender: FDA-Public Use
  Company Number: DSJ-2014-02609

PATIENT
  Sex: Female

DRUGS (6)
  1. BENICAR ANLO [Suspect]
     Indication: HYPERTENSION
     Dosage: 40/5MG (1 IN1 D) PER ORAL
     Route: 048
     Dates: start: 2013
  2. ROSUVASTATIN [Suspect]
     Indication: HYPERCHOLESTEROLAEMIA
     Route: 048
     Dates: start: 2013
  3. SIMVASTATIN [Suspect]
     Indication: HYPERCHOLESTEROLAEMIA
     Route: 048
  4. ATENOLO/CHLORHALIDONE (CHLORTALIDONE ATENOLOL) (CHLORTALIDONE, ATENOLOL) [Concomitant]
  5. ALLOPURINOL (ALLOPURINOL) [Concomitant]
  6. INSULIN (INSULIN) (INSULIN) [Concomitant]

REACTIONS (7)
  - Treatment noncompliance [None]
  - Arthropathy [None]
  - Abasia [None]
  - Hypersensitivity [None]
  - Tinnitus [None]
  - Stress [None]
  - Pruritus [None]
